FAERS Safety Report 7133387-X (Version None)
Quarter: 2010Q4

REPORT INFORMATION
  Report Type: 
  Country: None (occurrence: None)
  Receive Date: 20101202
  Receipt Date: 20101123
  Transmission Date: 20110411
  Serious: Yes (Death)
  Sender: FDA-Public Use
  Company Number: US-CELGENEUS-163-21880-10112763

PATIENT
  Sex: Female

DRUGS (6)
  1. REVLIMID [Suspect]
     Indication: MYELODYSPLASTIC SYNDROME
     Route: 048
     Dates: start: 20081112
  2. REVLIMID [Suspect]
     Route: 048
     Dates: start: 20090101, end: 20090101
  3. REVLIMID [Suspect]
     Route: 048
     Dates: start: 20090301, end: 20090101
  4. REVLIMID [Suspect]
     Route: 048
     Dates: start: 20090601, end: 20090101
  5. REVLIMID [Suspect]
     Route: 048
     Dates: start: 20091001
  6. REVLIMID [Suspect]
     Route: 048
     Dates: start: 20100101, end: 20100101

REACTIONS (1)
  - DEATH [None]
